FAERS Safety Report 10611536 (Version 1)
Quarter: 2014Q4

REPORT INFORMATION
  Report Type: Spontaneous
  Country: FR (occurrence: None)
  Receive Date: 20141124
  Receipt Date: 20141124
  Transmission Date: 20150529
  Serious: Yes (Death, Other)
  Sender: FDA-Public Use
  Company Number: ADR-2014-02201

PATIENT
  Age: 45 Year
  Sex: Male

DRUGS (1)
  1. BACLOFEN (ORAL) [Suspect]
     Active Substance: BACLOFEN
     Indication: ALCOHOLISM
     Dosage: (MEAN DOSE)

REACTIONS (3)
  - Asphyxia [None]
  - Off label use [None]
  - Completed suicide [None]

NARRATIVE: CASE EVENT DATE: 20140924
